FAERS Safety Report 8442262-X (Version None)
Quarter: 2012Q2

REPORT INFORMATION
  Report Type: 
  Country: None (occurrence: None)
  Receive Date: 20120615
  Receipt Date: 20120607
  Transmission Date: 20120825
  Serious: Yes (Other)
  Sender: FDA-Public Use
  Company Number: PR-ABBOTT-12P-131-0900548-00

PATIENT
  Sex: Female
  Weight: 78.088 kg

DRUGS (15)
  1. KLONOPIN [Concomitant]
     Indication: ANXIETY
     Dosage: HALF TABLET IN AFTERNOON
     Route: 048
  2. CYMBALTA [Concomitant]
     Indication: DEPRESSION
     Route: 048
  3. HUMIRA [Suspect]
     Indication: RHEUMATOID ARTHRITIS
     Route: 058
     Dates: start: 20080101, end: 20120101
  4. CYMBALTA [Concomitant]
     Indication: ANXIETY
  5. AZULFIDINE [Concomitant]
     Indication: RHEUMATOID ARTHRITIS
     Route: 048
  6. SINEMET [Concomitant]
     Indication: PARKINSON'S DISEASE
     Route: 048
  7. KLONOPIN [Concomitant]
     Dosage: AT BEDTIME
     Route: 048
  8. PLAQUENIL [Concomitant]
     Indication: RHEUMATOID ARTHRITIS
     Route: 048
  9. ACID FOLIC [Concomitant]
     Indication: RHEUMATOID ARTHRITIS
     Route: 048
  10. METHOTREXATE [Concomitant]
     Indication: RHEUMATOID ARTHRITIS
     Route: 048
  11. ZANTAC [Concomitant]
     Indication: PRODUCT USED FOR UNKNOWN INDICATION
     Route: 048
  12. HUMIRA [Suspect]
     Route: 058
     Dates: start: 20120522
  13. HUMIRA [Suspect]
     Indication: RHEUMATOID ARTHRITIS
     Route: 058
     Dates: start: 20120301, end: 20120508
  14. NEURONTIN [Concomitant]
     Indication: NEUROPATHY PERIPHERAL
     Route: 048
  15. KLONOPIN [Concomitant]
     Indication: DEPRESSION
     Dosage: HALF TABLET IN MORNING
     Route: 048

REACTIONS (4)
  - NEUROPATHY PERIPHERAL [None]
  - CATARACT [None]
  - PARKINSON'S DISEASE [None]
  - ASTHMA [None]
